FAERS Safety Report 10619676 (Version 1)
Quarter: 2014Q4

REPORT INFORMATION
  Report Type: Spontaneous
  Country: NL (occurrence: NL)
  Receive Date: 20141202
  Receipt Date: 20141202
  Transmission Date: 20150529
  Serious: Yes (Other)
  Sender: FDA-Public Use
  Company Number: NL-BRISTOL-MYERS SQUIBB COMPANY-21641444

PATIENT
  Age: 71 Year
  Sex: Female

DRUGS (1)
  1. SELEKTINE [Suspect]
     Active Substance: PRAVASTATIN SODIUM
     Indication: BLOOD CHOLESTEROL INCREASED
     Dosage: TO:14SEP2014
     Dates: start: 20000818

REACTIONS (1)
  - Amyotrophic lateral sclerosis [Unknown]
